FAERS Safety Report 25897804 (Version 1)
Quarter: 2025Q4

REPORT INFORMATION
  Report Type: Report from Study
  Country: US (occurrence: US)
  Receive Date: 20251008
  Receipt Date: 20251008
  Transmission Date: 20260117
  Serious: Yes (Hospitalization, Other)
  Sender: MYLAN
  Company Number: US-MYLANLABS-2025M1085253

PATIENT
  Sex: Male

DRUGS (20)
  1. YUPELRI [Suspect]
     Active Substance: REVEFENACIN
     Indication: Chronic obstructive pulmonary disease
     Dosage: 175 MICROGRAM PER 3 MILLILITRE, QD (ONCE A DAY)
     Dates: start: 20250911, end: 2025
  2. YUPELRI [Suspect]
     Active Substance: REVEFENACIN
     Dosage: 175 MICROGRAM PER 3 MILLILITRE, QD (ONCE A DAY)
     Route: 055
     Dates: start: 20250911, end: 2025
  3. YUPELRI [Suspect]
     Active Substance: REVEFENACIN
     Dosage: 175 MICROGRAM PER 3 MILLILITRE, QD (ONCE A DAY)
     Route: 055
     Dates: start: 20250911, end: 2025
  4. YUPELRI [Suspect]
     Active Substance: REVEFENACIN
     Dosage: 175 MICROGRAM PER 3 MILLILITRE, QD (ONCE A DAY)
     Dates: start: 20250911, end: 2025
  5. OHTUVAYRE [Suspect]
     Active Substance: ENSIFENTRINE
     Indication: Product used for unknown indication
     Dosage: UNK
  6. OHTUVAYRE [Suspect]
     Active Substance: ENSIFENTRINE
     Dosage: UNK
  7. OHTUVAYRE [Suspect]
     Active Substance: ENSIFENTRINE
     Dosage: UNK
     Route: 065
  8. OHTUVAYRE [Suspect]
     Active Substance: ENSIFENTRINE
     Dosage: UNK
     Route: 065
  9. OHTUVAYRE [Suspect]
     Active Substance: ENSIFENTRINE
     Dosage: UNK
  10. OHTUVAYRE [Suspect]
     Active Substance: ENSIFENTRINE
     Dosage: UNK
  11. OHTUVAYRE [Suspect]
     Active Substance: ENSIFENTRINE
     Dosage: UNK
     Route: 065
  12. OHTUVAYRE [Suspect]
     Active Substance: ENSIFENTRINE
     Dosage: UNK
     Route: 065
  13. BUDESONIDE [Suspect]
     Active Substance: BUDESONIDE
     Indication: Product used for unknown indication
     Dosage: UNK
  14. BUDESONIDE [Suspect]
     Active Substance: BUDESONIDE
     Dosage: UNK
     Route: 065
  15. BUDESONIDE [Suspect]
     Active Substance: BUDESONIDE
     Dosage: UNK
     Route: 065
  16. BUDESONIDE [Suspect]
     Active Substance: BUDESONIDE
     Dosage: UNK
  17. FORMOTEROL [Suspect]
     Active Substance: FORMOTEROL
     Indication: Product used for unknown indication
     Dosage: UNK
  18. FORMOTEROL [Suspect]
     Active Substance: FORMOTEROL
     Dosage: UNK
     Route: 065
  19. FORMOTEROL [Suspect]
     Active Substance: FORMOTEROL
     Dosage: UNK
     Route: 065
  20. FORMOTEROL [Suspect]
     Active Substance: FORMOTEROL
     Dosage: UNK

REACTIONS (4)
  - Respiratory disorder [Recovered/Resolved]
  - Bronchospasm [Recovered/Resolved]
  - Chest discomfort [Recovered/Resolved]
  - Chronic obstructive pulmonary disease [Recovered/Resolved]
